FAERS Safety Report 10086656 (Version 1)
Quarter: 2014Q2

REPORT INFORMATION
  Report Type: Spontaneous
  Country: US (occurrence: None)
  Receive Date: 20140417
  Receipt Date: 20140417
  Transmission Date: 20141212
  Serious: Yes (Life-Threatening)
  Sender: FDA-Public Use
  Company Number: None

PATIENT
  Age: 70 Year
  Sex: Male
  Weight: 65 kg

DRUGS (20)
  1. SOLIRIS [Suspect]
     Indication: HAEMOLYTIC URAEMIC SYNDROME
     Route: 042
     Dates: start: 20140119, end: 20140211
  2. MORPHINE [Concomitant]
  3. OXYCODONE/APAP [Concomitant]
  4. ALBUTEROL [Concomitant]
  5. AMOIDARONE [Concomitant]
  6. BUDESONIDE [Concomitant]
  7. BUMEX [Concomitant]
  8. CARVEDILOL [Concomitant]
  9. CEFTRIAXONE [Concomitant]
  10. DILTIAZEM [Concomitant]
  11. FAMOTIDINE [Concomitant]
  12. GABAPENTIN [Concomitant]
  13. HEPARIN [Concomitant]
  14. KEPPRA [Concomitant]
  15. SYNTHROID [Concomitant]
  16. MAG OX [Concomitant]
  17. NICOTINE PATCH [Concomitant]
  18. QUETIAPIN [Concomitant]
  19. CRESTOR [Concomitant]
  20. MENACTRA VACCINE [Concomitant]

REACTIONS (6)
  - Encephalopathy [None]
  - Delirium [None]
  - Convulsion [None]
  - Leukoencephalopathy [None]
  - Mental status changes [None]
  - Posterior reversible encephalopathy syndrome [None]
